FAERS Safety Report 12177842 (Version 3)
Quarter: 2016Q3

REPORT INFORMATION
  Report Type: Report from Study
  Country: US (occurrence: US)
  Receive Date: 20160314
  Receipt Date: 20160714
  Transmission Date: 20161109
  Serious: Yes (Hospitalization)
  Sender: FDA-Public Use
  Company Number: US-ALEXION PHARMACEUTICALS INC-A201601625

PATIENT
  Sex: Male

DRUGS (1)
  1. SOLIRIS [Suspect]
     Active Substance: ECULIZUMAB
     Indication: PAROXYSMAL NOCTURNAL HAEMOGLOBINURIA
     Dosage: UNK
     Route: 042

REACTIONS (11)
  - Weight increased [Unknown]
  - Nausea [Recovered/Resolved]
  - Chromaturia [Unknown]
  - Urine output decreased [Unknown]
  - Vomiting [Recovered/Resolved]
  - Hypertension [Unknown]
  - Abdominal tenderness [Recovering/Resolving]
  - Renal disorder [Unknown]
  - Abdominal distension [Recovering/Resolving]
  - Peripheral swelling [Recovered/Resolved]
  - Blood creatinine increased [Recovered/Resolved]
